FAERS Safety Report 4626903-0 (Version None)
Quarter: 2005Q2

REPORT INFORMATION
  Report Type: 
  Country: None (occurrence: None)
  Receive Date: 20050405
  Receipt Date: 20050222
  Transmission Date: 20051028
  Serious: Yes (Disabling, Other)
  Sender: FDA-Public Use
  Company Number: US-MERCK-0502USA02824

PATIENT
  Age: 63 Year
  Sex: Female

DRUGS (14)
  1. VIOXX [Suspect]
     Indication: ARTHRITIS
     Route: 048
     Dates: start: 20010101
  2. VIOXX [Suspect]
     Route: 048
  3. VIOXX [Suspect]
     Route: 048
     Dates: end: 20040101
  4. VIOXX [Suspect]
     Indication: HEADACHE
     Route: 048
     Dates: start: 20010101
  5. VIOXX [Suspect]
     Route: 048
  6. VIOXX [Suspect]
     Route: 048
     Dates: end: 20040101
  7. THEO-DUR [Concomitant]
     Route: 065
  8. LASIX [Concomitant]
     Indication: OEDEMA
     Route: 065
  9. POTASSIUM CHLORIDE [Concomitant]
     Route: 065
  10. ZOLOFT [Concomitant]
     Indication: DEPRESSION
     Route: 065
  11. ESTROGENS (UNSPECIFIED) [Concomitant]
     Route: 065
  12. AVAPRO [Concomitant]
     Indication: HEADACHE
     Route: 065
  13. ZONEGRAN [Concomitant]
     Route: 065
  14. MAGNESIUM (UNSPECIFIED) [Concomitant]
     Indication: HEADACHE
     Route: 065

REACTIONS (6)
  - BACK DISORDER [None]
  - CEREBROVASCULAR ACCIDENT [None]
  - FEELING ABNORMAL [None]
  - HEADACHE [None]
  - PRESCRIBED OVERDOSE [None]
  - VOMITING [None]
